FAERS Safety Report 5594246-7 (Version None)
Quarter: 2007Q4

REPORT INFORMATION
  Report Type: 
  Country: None (occurrence: None)
  Receive Date: 20071218
  Receipt Date: 20070102
  Transmission Date: 20080405
  Serious: Yes (Hospitalization)
  Sender: FDA-Public Use
  Company Number: 2007001825

PATIENT
  Age: 45 Year
  Sex: Female
  Weight: 86.2 kg

DRUGS (1)
  1. BEXTRA [Suspect]
     Indication: BACK PAIN
     Dosage: 40 MG (20 MG,2 IN 1 D)
     Dates: start: 20020401

REACTIONS (1)
  - MYOCARDIAL INFARCTION [None]
